FAERS Safety Report 5329514-7 (Version None)
Quarter: 2007Q1

REPORT INFORMATION
  Report Type: 
  Country: None (occurrence: None)
  Receive Date: 20070223
  Receipt Date: 20060308
  Transmission Date: 20070707
  Serious: Yes (Other)
  Sender: FDA-Public Use
  Company Number: WAES 0603USA01486

PATIENT
  Age: 64 Year
  Sex: Male

DRUGS (4)
  1. ZOCOR [Suspect]
     Indication: BLOOD CHOLESTEROL
     Dosage: PO
     Route: 048
     Dates: end: 20051225
  2. TRANDATE [Concomitant]
  3. ZESTRIL [Concomitant]
  4. ZETIA [Concomitant]

REACTIONS (1)
  - RHABDOMYOLYSIS [None]
